FAERS Safety Report 23133535 (Version 1)
Quarter: 2023Q4

REPORT INFORMATION
  Report Type: Spontaneous
  Country: CN (occurrence: CN)
  Receive Date: 20231101
  Receipt Date: 20231101
  Transmission Date: 20240110
  Serious: Yes (Other)
  Sender: FDA-Public Use
  Company Number: CN-AUROBINDO-AUR-APL-2023-066254

PATIENT
  Age: 54 Year
  Sex: Female
  Weight: 68 kg

DRUGS (16)
  1. AMLODIPINE BESYLATE [Suspect]
     Active Substance: AMLODIPINE BESYLATE
     Indication: Hypertension
     Dosage: 5 MILLIGRAM, ONCE A DAY
     Route: 065
  2. AMLODIPINE BESYLATE [Suspect]
     Active Substance: AMLODIPINE BESYLATE
     Indication: Bradycardia
  3. AMLODIPINE BESYLATE [Suspect]
     Active Substance: AMLODIPINE BESYLATE
     Indication: Anaesthesia
  4. PROPOFOL [Suspect]
     Active Substance: PROPOFOL
     Indication: Hypertension
     Dosage: 2 MILLIGRAM/KILOGRAM
     Route: 042
  5. PROPOFOL [Suspect]
     Active Substance: PROPOFOL
     Indication: Bradycardia
     Dosage: 46 MILLIGRAM/KILOGRAM, EVERY HOUR
     Route: 042
  6. PROPOFOL [Suspect]
     Active Substance: PROPOFOL
     Indication: Anaesthesia
  7. REMIFENTANIL [Suspect]
     Active Substance: REMIFENTANIL
     Indication: Hypertension
     Dosage: 0.1-0.2 UG/KG/MIN
     Route: 065
  8. REMIFENTANIL [Suspect]
     Active Substance: REMIFENTANIL
     Indication: Bradycardia
     Dosage: 0.15 MICROGRAM/KILOGRAM, PER MIN
     Route: 065
  9. REMIFENTANIL [Suspect]
     Active Substance: REMIFENTANIL
     Indication: Anaesthesia
  10. SUFENTANIL [Suspect]
     Active Substance: SUFENTANIL
     Indication: Hypertension
     Dosage: 1.5 MICROGRAM/KILOGRAM
     Route: 065
  11. SUFENTANIL [Suspect]
     Active Substance: SUFENTANIL
     Indication: Bradycardia
  12. SUFENTANIL [Suspect]
     Active Substance: SUFENTANIL
     Indication: Anaesthesia
  13. VECURONIUM [Suspect]
     Active Substance: VECURONIUM BROMIDE
     Indication: Hypertension
     Dosage: 0.6 MILLIGRAM/KILOGRAM
     Route: 065
  14. VECURONIUM [Suspect]
     Active Substance: VECURONIUM BROMIDE
     Indication: Bradycardia
     Dosage: 20 MILLIGRAM
     Route: 065
  15. VECURONIUM [Suspect]
     Active Substance: VECURONIUM BROMIDE
     Indication: Anaesthesia
  16. BISOPROLOL FUMARATE [Concomitant]
     Active Substance: BISOPROLOL FUMARATE
     Indication: Hypertension
     Dosage: UNK
     Route: 065

REACTIONS (1)
  - Hypoxia [Unknown]
